FAERS Safety Report 5341037-8 (Version None)
Quarter: 2007Q2

REPORT INFORMATION
  Report Type: 
  Country: None (occurrence: None)
  Receive Date: 20070530
  Receipt Date: 20070514
  Transmission Date: 20071010
  Serious: Yes (Hospitalization, Other)
  Sender: FDA-Public Use
  Company Number: 16581

PATIENT
  Age: 42 Year
  Sex: Male
  Weight: 63.5 kg

DRUGS (4)
  1. CYTARABINE [Suspect]
     Indication: ACUTE MYELOID LEUKAEMIA
     Dates: start: 20070307, end: 20070311
  2. MITOXANTRONE [Suspect]
     Indication: ACUTE MYELOID LEUKAEMIA
     Dates: start: 20070303, end: 20070311
  3. CEP-701 [Suspect]
     Indication: ACUTE MYELOID LEUKAEMIA
     Dosage: 80 MG BID PO
     Route: 047
     Dates: start: 20070313, end: 20070410
  4. ETOPOSIE. MFR: NOT SPECIFIED [Suspect]
     Indication: ACUTE MYELOID LEUKAEMIA
     Dates: start: 20070307, end: 20070311

REACTIONS (23)
  - ABDOMINAL PAIN [None]
  - ACUTE RESPIRATORY DISTRESS SYNDROME [None]
  - ACUTE RESPIRATORY FAILURE [None]
  - BACTERIAL INFECTION [None]
  - BLOOD CREATININE INCREASED [None]
  - BLOOD CULTURE POSITIVE [None]
  - BLOOD PH DECREASED [None]
  - BLOOD UREA DECREASED [None]
  - CLOSTRIDIUM DIFFICILE COLITIS [None]
  - CONSTIPATION [None]
  - DRUG TOXICITY [None]
  - ENTEROCOLITIS [None]
  - HAEMATOCRIT DECREASED [None]
  - HAEMOGLOBIN DECREASED [None]
  - HYPOVOLAEMIA [None]
  - MEGACOLON [None]
  - MUCOSAL INFLAMMATION [None]
  - NEUTROPENIA [None]
  - OXYGEN SATURATION DECREASED [None]
  - PLATELET COUNT DECREASED [None]
  - RENAL FAILURE ACUTE [None]
  - SEPSIS [None]
  - WHITE BLOOD CELL COUNT DECREASED [None]
